FAERS Safety Report 17642562 (Version 3)
Quarter: 2020Q2

REPORT INFORMATION
  Report Type: Report from Study
  Country: None (occurrence: CH)
  Receive Date: 20200408
  Receipt Date: 20200430
  Transmission Date: 20200713
  Serious: Yes (Death, Life-Threatening, Hospitalization)
  Sender: FDA-Public Use
  Company Number: CH-ABBVIE-20K-151-3337943-00

PATIENT
  Age: 76 Year
  Sex: Male

DRUGS (1)
  1. DUODOPA [Suspect]
     Active Substance: CARBIDOPA\LEVODOPA
     Indication: PARKINSON^S DISEASE
     Dosage: 1 CASSETTE / 24 H
     Route: 050
     Dates: start: 201808

REACTIONS (3)
  - Pneumonia [Fatal]
  - Condition aggravated [Fatal]
  - Epilepsy [Unknown]

NARRATIVE: CASE EVENT DATE: 202002
